FAERS Safety Report 7138730-3 (Version None)
Quarter: 2010Q4

REPORT INFORMATION
  Report Type: 
  Country: None (occurrence: None)
  Receive Date: 20101122
  Receipt Date: 20101115
  Transmission Date: 20110411
  Serious: Yes (Hospitalization)
  Sender: FDA-Public Use
  Company Number: DSA_44346_2010

PATIENT
  Sex: Male

DRUGS (8)
  1. XENAZINE [Suspect]
     Indication: MUSCLE SPASMS
     Dosage: 25 MG BID ORAL
     Route: 048
     Dates: start: 20081216
  2. ATIVAN [Concomitant]
  3. M.V.I. [Concomitant]
  4. CONCERTA [Concomitant]
  5. OMEGA 3 /00931501/ [Concomitant]
  6. COENZYME Q10 [Concomitant]
  7. CELEXA [Concomitant]
  8. TRAZODONE [Concomitant]

REACTIONS (2)
  - INTENTIONAL SELF-INJURY [None]
  - SUICIDAL IDEATION [None]
